FAERS Safety Report 7726126-2 (Version None)
Quarter: 2011Q3

REPORT INFORMATION
  Report Type: 
  Country: None (occurrence: None)
  Receive Date: 20110902
  Receipt Date: 20110825
  Transmission Date: 20111222
  Serious: Yes (Disabling)
  Sender: FDA-Public Use
  Company Number: GXKR2008GB02596

PATIENT
  Age: 32 Year
  Sex: Female
  Weight: 46 kg

DRUGS (9)
  1. CALCIUM CARBONATE [Interacting]
     Indication: OSTEOPENIA
     Dosage: 1 DF, QID
     Route: 065
     Dates: start: 19980101
  2. NORDETTE-28 [Interacting]
     Indication: CONTRACEPTION
     Dosage: 30 MG, QD
     Route: 065
     Dates: start: 20040101
  3. AMITRIPTYLINE HCL [Interacting]
     Indication: INSOMNIA
  4. NIFEDIPINE [Interacting]
     Indication: INSOMNIA
     Dosage: 5 MG, BID
     Route: 065
     Dates: start: 20040101
  5. NIFEDIPINE [Interacting]
     Indication: RAYNAUD'S PHENOMENON
  6. MULTI-VITAMINS [Concomitant]
  7. AMITRIPTYLINE HCL [Suspect]
     Indication: DEPRESSION
     Dosage: 150 MG, QD
     Route: 065
     Dates: start: 20060701
  8. PROVIGIL [Interacting]
     Indication: MULTIPLE SCLEROSIS
     Dosage: 200 MG, QD
     Dates: start: 20061001, end: 20080204
  9. PROVIGIL [Interacting]
     Indication: FATIGUE
     Dosage: 200 MG, QD
     Route: 048
     Dates: start: 20060201, end: 20060301

REACTIONS (4)
  - ARTHRALGIA [None]
  - DRUG INTERACTION [None]
  - LUPUS-LIKE SYNDROME [None]
  - RASH ERYTHEMATOUS [None]
